FAERS Safety Report 7854718-9 (Version None)
Quarter: 2011Q4

REPORT INFORMATION
  Report Type: 
  Country: None (occurrence: None)
  Receive Date: 20111026
  Receipt Date: 20110718
  Transmission Date: 20120403
  Serious: No
  Sender: FDA-Public Use
  Company Number: US-MUTUAL PHARMACEUTICAL COMPANY, INC.-CLCY20110084

PATIENT
  Sex: Male
  Weight: 90.8 kg

DRUGS (2)
  1. NONE [Concomitant]
  2. COLCRYS [Suspect]
     Indication: GOUT
     Route: 048
     Dates: start: 20110715, end: 20110715

REACTIONS (5)
  - MUSCULAR WEAKNESS [None]
  - ABDOMINAL PAIN [None]
  - VOMITING [None]
  - HYPERHIDROSIS [None]
  - SKIN DISCOLOURATION [None]
